FAERS Safety Report 10039101 (Version 1)
Quarter: 2014Q1

REPORT INFORMATION
  Report Type: Spontaneous
  Country: CN (occurrence: CN)
  Receive Date: 20140326
  Receipt Date: 20140326
  Transmission Date: 20141002
  Serious: Yes (Hospitalization)
  Sender: FDA-Public Use
  Company Number: PHHY2014CN033828

PATIENT
  Age: 43 Year
  Sex: Female

DRUGS (4)
  1. MIACALCIC [Suspect]
     Indication: HYPERGLYCAEMIA
     Dosage: 400 U, BID
     Route: 042
  2. FUROSEMIDE [Suspect]
     Indication: HYPERGLYCAEMIA
  3. CIMETIDINE [Suspect]
     Indication: HYPERGLYCAEMIA
  4. GLUCOCORTICOIDS [Suspect]
     Indication: HYPERGLYCAEMIA

REACTIONS (3)
  - Hypercalcaemia [Recovered/Resolved]
  - Renal impairment [Recovering/Resolving]
  - Cardiac disorder [Unknown]
